FAERS Safety Report 4751486-4 (Version None)
Quarter: 2005Q3

REPORT INFORMATION
  Report Type: 
  Country: None (occurrence: None)
  Receive Date: 20050824
  Receipt Date: 20050817
  Transmission Date: 20060218
  Serious: Yes (Other)
  Sender: FDA-Public Use
  Company Number: PHNR2005AU01277

PATIENT
  Age: 59 Year
  Sex: Female

DRUGS (26)
  1. ASTRIX [Concomitant]
     Dosage: 100 MG, QD
  2. LIPITOR [Concomitant]
     Dosage: 10 MG, UNK
     Route: 048
  3. COVERSYL [Concomitant]
     Dosage: 4 MG, QD
  4. LOSEC [Concomitant]
     Dosage: 20 MG, UNK
     Route: 048
  5. OSTELIN [Concomitant]
     Dosage: 2000 IU, UNK
     Route: 048
  6. TRAMAL - SLOW RELEASE [Concomitant]
     Dosage: 100 MG, UNK
     Route: 048
  7. E.E.S. [Concomitant]
  8. FLIXOTIDE [Concomitant]
  9. FORTRAL [Concomitant]
  10. GASTROLYTE [Concomitant]
  11. GRANOCOL [Concomitant]
  12. IBILEX [Concomitant]
  13. BIAXIN [Concomitant]
  14. LOMOTIL [Concomitant]
  15. MAXOLON [Concomitant]
  16. MERSYNDOL [Concomitant]
  17. MYLANTA [Concomitant]
  18. NOROXIN [Concomitant]
  19. ACETAMINOPHEN W/ CODEINE [Concomitant]
  20. PANAMAX [Concomitant]
  21. PROCTOSEDYL [Concomitant]
  22. QUININE BISULPHATE [Concomitant]
  23. RULIDE [Concomitant]
  24. PROCHLORPERAZINE [Concomitant]
  25. TEMAZE [Concomitant]
  26. ZOMETA [Suspect]
     Indication: OSTEOPOROSIS

REACTIONS (5)
  - ARTHRALGIA [None]
  - COMPLEX REGIONAL PAIN SYNDROME [None]
  - ERYTHEMA [None]
  - MUSCULOSKELETAL STIFFNESS [None]
  - SWELLING [None]
